FAERS Safety Report 20106975 (Version 2)
Quarter: 2025Q2

REPORT INFORMATION
  Report Type: Spontaneous
  Country: US (occurrence: US)
  Receive Date: 20211124
  Receipt Date: 20250624
  Transmission Date: 20250716
  Serious: Yes (Other)
  Sender: AUROBINDO
  Company Number: US-MLMSERVICE-20211109-3210157-2

PATIENT
  Age: 47 Year
  Sex: Female

DRUGS (5)
  1. DEXAMETHASONE [Suspect]
     Active Substance: DEXAMETHASONE
     Indication: Astrocytoma
     Dosage: 2 MILLIGRAM, TWO TIMES A DAY
     Route: 065
     Dates: start: 2015, end: 2015
  2. DEXAMETHASONE [Suspect]
     Active Substance: DEXAMETHASONE
     Dosage: 4 MILLIGRAM, TWO TIMES A DAY
     Route: 065
     Dates: start: 201507, end: 2015
  3. HYDROCORTISONE [Suspect]
     Active Substance: HYDROCORTISONE
     Indication: Astrocytoma
     Route: 065
     Dates: start: 2015, end: 201512
  4. HYDROCORTISONE [Suspect]
     Active Substance: HYDROCORTISONE
     Dosage: 20 MILLIGRAM, ONCE A DAY(EVERY MORNING)
     Route: 065
     Dates: start: 201509, end: 201512
  5. HYDROCORTISONE [Suspect]
     Active Substance: HYDROCORTISONE
     Dosage: 10 MILLIGRAM, ONCE A DAY(EVERY EVENING)
     Route: 065
     Dates: start: 201509, end: 201509

REACTIONS (2)
  - Osteonecrosis [Unknown]
  - Adrenal insufficiency [Unknown]

NARRATIVE: CASE EVENT DATE: 20150901
